FAERS Safety Report 10998269 (Version 1)
Quarter: 2015Q2

REPORT INFORMATION
  Report Type: Spontaneous
  Country: US (occurrence: US)
  Receive Date: 20150408
  Receipt Date: 20150408
  Transmission Date: 20150821
  Serious: No
  Sender: FDA-Public Use
  Company Number: US-SA-2014SA042073

PATIENT
  Age: 75 Year
  Sex: Female

DRUGS (3)
  1. FEXOFENADINE HYDROCHLORIDE. [Suspect]
     Active Substance: FEXOFENADINE HYDROCHLORIDE
     Indication: SINUS CONGESTION
     Dosage: SHE HAD TAKEN IT EVERY 12 HRS FOR 3 DAYS AND TOOK IT ONCE YESTERDAY IN THE MORNING.
     Route: 048
     Dates: start: 20140328
  2. PRILOSEC [Concomitant]
     Active Substance: OMEPRAZOLE MAGNESIUM
  3. CEFDINIR. [Concomitant]
     Active Substance: CEFDINIR
     Indication: INFECTION

REACTIONS (1)
  - Insomnia [Not Recovered/Not Resolved]
